FAERS Safety Report 6911395-9 (Version None)
Quarter: 2010Q3

REPORT INFORMATION
  Report Type: 
  Country: None (occurrence: None)
  Receive Date: 20100806
  Receipt Date: 20100727
  Transmission Date: 20110219
  Serious: Yes (Other)
  Sender: FDA-Public Use
  Company Number: ZA-PFIZER INC-2010094333

PATIENT
  Age: 53 Year
  Sex: Female

DRUGS (5)
  1. LYRICA [Suspect]
     Indication: ANALGESIC THERAPY
     Dosage: 25 MG, 1X/DAY FOR 3 DAYS
     Route: 048
     Dates: start: 20100630
  2. LYRICA [Suspect]
     Dosage: 50 MG, 1X/DAY FOR 3 DAYS
     Route: 048
  3. LYRICA [Suspect]
     Dosage: 75 MG, 1X/DAY FOR 3 DAYS
     Route: 048
  4. LYRICA [Suspect]
     Dosage: 75 MG, 2X/DAY
     Route: 048
  5. TREPILINE [Concomitant]
     Dosage: 25 MG, 1X/DAY, AT NIGHT

REACTIONS (1)
  - INFLAMMATION [None]
